FAERS Safety Report 9294861 (Version 2)
Quarter: 2013Q2

REPORT INFORMATION
  Report Type: Spontaneous
  Country: US (occurrence: None)
  Receive Date: 20121227
  Receipt Date: 20130507
  Transmission Date: 20140414
  Serious: Yes (Other)
  Sender: FDA-Public Use
  Company Number: PHEH2012US021163

PATIENT
  Age: 46 Year
  Sex: Female

DRUGS (3)
  1. AFINITOR [Suspect]
     Indication: TUBEROUS SCLEROSIS
     Route: 048
     Dates: start: 20120928
  2. VICODIN [Concomitant]
  3. CITALOPRAM (CITALOPRAM) [Concomitant]

REACTIONS (5)
  - Sinusitis [None]
  - Headache [None]
  - Diarrhoea [None]
  - Rash [None]
  - Pain [None]
